FAERS Safety Report 25748515 (Version 1)
Quarter: 2025Q3

REPORT INFORMATION
  Report Type: Spontaneous
  Country: US (occurrence: US)
  Receive Date: 20250902
  Receipt Date: 20250902
  Transmission Date: 20251020
  Serious: No
  Sender: ELI LILLY AND COMPANY
  Company Number: US-ELI_LILLY_AND_COMPANY-US202508025843

PATIENT
  Age: 61 Year
  Sex: Female

DRUGS (1)
  1. OLUMIANT [Suspect]
     Active Substance: BARICITINIB
     Indication: Alopecia areata
     Dosage: 2 MG, ONCE DAILY
     Route: 048

REACTIONS (5)
  - Laboratory test abnormal [Unknown]
  - Antinuclear antibody positive [Unknown]
  - Blood oestrogen abnormal [Unknown]
  - Fatigue [Unknown]
  - Weight increased [Unknown]
